FAERS Safety Report 4362307-6 (Version None)
Quarter: 2004Q2

REPORT INFORMATION
  Report Type: 
  Country: None (occurrence: None)
  Receive Date: 20040517
  Receipt Date: 20040503
  Transmission Date: 20050107
  Serious: Yes (Death, Other)
  Sender: FDA-Public Use
  Company Number: 2015137

PATIENT
  Age: 37 Year
  Sex: Male

DRUGS (2)
  1. OXYCONTIN [Suspect]
     Dosage: INTRAVENOUS
     Route: 042
  2. ALCOHOL [Concomitant]

REACTIONS (4)
  - ALCOHOL USE [None]
  - MEDICATION ERROR [None]
  - OVERDOSE [None]
  - VICTIM OF HOMICIDE [None]
